FAERS Safety Report 21209676 (Version 7)
Quarter: 2023Q4

REPORT INFORMATION
  Report Type: Report from Study
  Country: US (occurrence: US)
  Receive Date: 20220813
  Receipt Date: 20231206
  Transmission Date: 20240109
  Serious: Yes (Hospitalization, Other)
  Sender: FDA-Public Use
  Company Number: US-ABBVIE-22K-163-4497641-00

PATIENT
  Age: 74 Year
  Sex: Female
  Weight: 63 kg

DRUGS (13)
  1. IMBRUVICA [Suspect]
     Active Substance: IBRUTINIB
     Indication: Mantle cell lymphoma
     Dosage: FORM STRENGTH: 140 MILLIGRAM
     Route: 048
     Dates: start: 202110, end: 202207
  2. IMBRUVICA [Suspect]
     Active Substance: IBRUTINIB
     Indication: Mantle cell lymphoma
     Dosage: FORM STRENGTH: 140 MILLIGRAM
     Route: 048
     Dates: start: 202207
  3. IMBRUVICA [Suspect]
     Active Substance: IBRUTINIB
     Indication: Mantle cell lymphoma
     Dosage: FORM STRENGTH: 140 MILLIGRAM, LAST ADMINISTRATION DATE: 2021
     Route: 048
     Dates: start: 20210721
  4. LEFLUNOMIDE [Concomitant]
     Active Substance: LEFLUNOMIDE
     Indication: Rheumatoid arthritis
     Dosage: 20 MG
  5. PFIZER-BIONTECH COVID-19 VACCINE [Concomitant]
     Active Substance: TOZINAMERAN
     Indication: COVID-19 immunisation
     Dosage: TIME INTERVAL: 1 TOTAL: FIRST DOSE, ONE IN ONCE
     Route: 030
     Dates: start: 20210111, end: 20210111
  6. PFIZER-BIONTECH COVID-19 VACCINE [Concomitant]
     Active Substance: TOZINAMERAN
     Indication: COVID-19 immunisation
     Dosage: TIME INTERVAL: 1 TOTAL: SECOND DOSE, ONE IN ONCE
     Route: 030
     Dates: start: 20210201, end: 20210201
  7. PFIZER-BIONTECH COVID-19 VACCINE [Concomitant]
     Active Substance: TOZINAMERAN
     Indication: COVID-19 immunisation
     Dosage: TIME INTERVAL: 1 TOTAL: THIRD DOSE OR BOOSTER DOSE, ONE IN ONCE
     Route: 030
     Dates: start: 20211020, end: 20211020
  8. AMLODIPINE [Concomitant]
     Active Substance: AMLODIPINE BESYLATE
     Indication: Hypertension
     Dosage: 5 MG
  9. METHOTREXATE [Concomitant]
     Active Substance: METHOTREXATE
     Indication: Rheumatoid arthritis
  10. METHOTREXATE [Concomitant]
     Active Substance: METHOTREXATE
     Indication: Rheumatoid arthritis
  11. SIMVASTATIN [Concomitant]
     Active Substance: SIMVASTATIN
     Indication: Blood cholesterol increased
  12. SYNTHROID [Suspect]
     Active Substance: LEVOTHYROXINE SODIUM
     Indication: Hypothyroidism
     Route: 048
  13. PROLIA [Concomitant]
     Active Substance: DENOSUMAB
     Indication: Osteoporosis

REACTIONS (12)
  - Arthritis [Recovered/Resolved]
  - Blood iron abnormal [Unknown]
  - Intervertebral disc protrusion [Unknown]
  - Cardiac failure congestive [Unknown]
  - Rheumatoid arthritis [Recovered/Resolved]
  - Stress fracture [Recovered/Resolved]
  - Swelling face [Recovered/Resolved]
  - Skin exfoliation [Unknown]
  - Dry skin [Not Recovered/Not Resolved]
  - Pruritus [Unknown]
  - Weight decreased [Recovering/Resolving]
  - Post procedural complication [Unknown]

NARRATIVE: CASE EVENT DATE: 20211001
